FAERS Safety Report 6980385-2 (Version None)
Quarter: 2010Q3

REPORT INFORMATION
  Report Type: 
  Country: None (occurrence: None)
  Receive Date: 20100914
  Receipt Date: 20100903
  Transmission Date: 20110219
  Serious: Yes (Death)
  Sender: FDA-Public Use
  Company Number: US-KINGPHARMUSA00001-K201001119

PATIENT
  Sex: Female
  Weight: 108.39 kg

DRUGS (10)
  1. EMBEDA [Suspect]
     Dosage: 30 MG, QD
     Route: 048
     Dates: start: 20100501
  2. ALTACE [Concomitant]
     Dosage: 10 MG, UNK
     Route: 048
  3. SIMVASTATIN [Concomitant]
     Dosage: 20 MG, UNK
     Route: 048
  4. BUMETANIDE [Concomitant]
     Dosage: 0.5 MG, UNK
     Route: 048
  5. SEROQUEL [Concomitant]
     Dosage: 50 MG, UNK
     Route: 048
  6. FLUOXETINE [Concomitant]
     Dosage: 20 MG, UNK
     Route: 048
  7. ESTRADIOL [Concomitant]
     Dosage: 0.5 MG, UNK
     Route: 048
  8. CELEBREX [Concomitant]
     Dosage: 200 MG, UNK
     Route: 048
  9. BENICAR [Concomitant]
     Dosage: 20 MG, UNK
     Route: 048
  10. CLORAZEPATE DIPOTASSIUM [Concomitant]
     Dosage: 2.5 MG, UNK
     Route: 048

REACTIONS (1)
  - DEATH [None]
